FAERS Safety Report 20339367 (Version 1)
Quarter: 2022Q1

REPORT INFORMATION
  Report Type: Other
  Country: ZA (occurrence: ZA)
  Receive Date: 20220117
  Receipt Date: 20220117
  Transmission Date: 20220424
  Serious: Yes (Other)
  Sender: FDA-Public Use
  Company Number: ZA-002147023-NVSC2020ZA285937

PATIENT
  Age: 75 Year
  Sex: Male

DRUGS (7)
  1. LUCENTIS [Suspect]
     Active Substance: RANIBIZUMAB
     Indication: Age-related macular degeneration
     Route: 047
     Dates: start: 20200804
  2. LUCENTIS [Suspect]
     Active Substance: RANIBIZUMAB
     Route: 047
  3. LUCENTIS [Suspect]
     Active Substance: RANIBIZUMAB
     Route: 047
  4. LUCENTIS [Suspect]
     Active Substance: RANIBIZUMAB
     Route: 047
  5. LUCENTIS [Suspect]
     Active Substance: RANIBIZUMAB
     Route: 065
     Dates: start: 20210330
  6. LUCENTIS [Suspect]
     Active Substance: RANIBIZUMAB
     Route: 065
     Dates: start: 20210525
  7. LUCENTIS [Suspect]
     Active Substance: RANIBIZUMAB
     Route: 065
     Dates: start: 20210720

REACTIONS (3)
  - Choroidal neovascularisation [Unknown]
  - Retinal oedema [Unknown]
  - Visual acuity reduced [Unknown]

NARRATIVE: CASE EVENT DATE: 20201021
